FAERS Safety Report 6294850-7 (Version None)
Quarter: 2009Q3

REPORT INFORMATION
  Report Type: 
  Country: None (occurrence: None)
  Receive Date: 20090803
  Receipt Date: 20090727
  Transmission Date: 20100115
  Serious: Yes (Other)
  Sender: FDA-Public Use
  Company Number: PHHY2009MX31221

PATIENT
  Age: 44 Year
  Sex: Female

DRUGS (1)
  1. TEGRETOL [Suspect]
     Indication: EPILEPSY
     Dosage: 2 TABLETS (400 MG) PER DAY
     Dates: start: 19690701

REACTIONS (2)
  - LIVER DISORDER [None]
  - OEDEMA PERIPHERAL [None]
